FAERS Safety Report 8657974 (Version 4)
Quarter: 2012Q4

REPORT INFORMATION
  Report Type: 
  Country: GB (occurrence: GB)
  Receive Date: 20120710
  Receipt Date: 20121004
  Transmission Date: 20130627
  Serious: Yes (Congenital Anomaly, Other)
  Sender: FDA-Public Use
  Company Number: GB-ELI_LILLY_AND_COMPANY-GB201206008779

PATIENT

DRUGS (4)
  1. PROZAC [Suspect]
     Dosage: UNK
     Route: 064
  2. PROZAC [Suspect]
     Dosage: UNK
     Route: 064
  3. PROZAC [Suspect]
     Dosage: UNK
     Route: 063
  4. PROZAC [Suspect]
     Dosage: UNK
     Route: 063

REACTIONS (4)
  - Ankyloglossia congenital [Recovered/Resolved]
  - Feeding disorder neonatal [Recovered/Resolved]
  - Foetal exposure during pregnancy [Recovered/Resolved]
  - Exposure during breast feeding [Not Recovered/Not Resolved]
